FAERS Safety Report 17952858 (Version 1)
Quarter: 2020Q2

REPORT INFORMATION
  Report Type: Spontaneous
  Country: AT (occurrence: AT)
  Receive Date: 20200627
  Receipt Date: 20200627
  Transmission Date: 20200714
  Serious: Yes (Other)
  Sender: FDA-Public Use
  Company Number: AT-ACCORD-186730

PATIENT
  Age: 57 Year
  Sex: Male

DRUGS (9)
  1. PANTOPRAZOLE [Concomitant]
     Active Substance: PANTOPRAZOLE
     Route: 048
     Dates: end: 20200401
  2. THROMBO ASS [Concomitant]
     Active Substance: ASPIRIN
     Route: 048
     Dates: end: 20200401
  3. Q10 [Concomitant]
     Active Substance: UBIDECARENONE
     Dosage: 60 MG
     Route: 048
  4. ROSUVASTATIN. [Concomitant]
     Active Substance: ROSUVASTATIN
     Route: 048
     Dates: end: 20200331
  5. PLAVIX [Suspect]
     Active Substance: CLOPIDOGREL BISULFATE
     Indication: VASCULAR GRAFT
     Dosage: 75 MG
     Route: 048
     Dates: start: 20191210, end: 202004
  6. KCI RETARD [Concomitant]
     Dosage: 600MG
     Route: 048
     Dates: end: 20200401
  7. CONCOR [Concomitant]
     Active Substance: BISOPROLOL FUMARATE
     Dosage: 5 MG
     Route: 048
     Dates: end: 20200401
  8. ROSUVASTATIN. [Concomitant]
     Active Substance: ROSUVASTATIN
     Route: 048
     Dates: start: 20200401
  9. CLOPIDOGREL [Suspect]
     Active Substance: CLOPIDOGREL BISULFATE
     Indication: VASCULAR GRAFT
     Dosage: 75 MG
     Route: 048
     Dates: start: 202004

REACTIONS (3)
  - Drug eruption [Recovered/Resolved]
  - Peripheral coldness [Recovered/Resolved]
  - Hypoaesthesia oral [Recovered/Resolved]

NARRATIVE: CASE EVENT DATE: 202002
